FAERS Safety Report 9617017 (Version 1)
Quarter: 2013Q4

REPORT INFORMATION
  Report Type: Spontaneous
  Country: DE (occurrence: DE)
  Receive Date: 20131011
  Receipt Date: 20131011
  Transmission Date: 20140711
  Serious: Yes (Other)
  Sender: FDA-Public Use
  Company Number: DE-ROCHE-1287630

PATIENT
  Age: 62 Year
  Sex: Male

DRUGS (3)
  1. AVASTIN [Suspect]
     Indication: COLON CANCER
     Route: 065
     Dates: start: 201104
  2. RIBOFLUOR [Concomitant]
     Indication: COLON CANCER
     Route: 065
     Dates: start: 201104
  3. ENALAPRIL [Concomitant]
     Indication: HYPERTENSION
     Route: 065

REACTIONS (1)
  - Gingival recession [Not Recovered/Not Resolved]
